FAERS Safety Report 6594184-7 (Version None)
Quarter: 2010Q1

REPORT INFORMATION
  Report Type: 
  Country: None (occurrence: None)
  Receive Date: 20100222
  Receipt Date: 20100212
  Transmission Date: 20100710
  Serious: Yes (Death)
  Sender: FDA-Public Use
  Company Number: DE-ROCHE-685843

PATIENT
  Sex: Male
  Weight: 63 kg

DRUGS (5)
  1. AVASTIN [Suspect]
     Indication: RECTAL CANCER METASTATIC
     Route: 042
     Dates: start: 20090401, end: 20091001
  2. AVASTIN [Suspect]
     Route: 042
     Dates: start: 20091001, end: 20091201
  3. XELODA [Concomitant]
     Indication: RECTAL CANCER METASTATIC
     Route: 048
     Dates: start: 20091023, end: 20091229
  4. RAMIPRIL [Concomitant]
     Indication: HYPERTENSION
     Route: 048
     Dates: start: 20080101
  5. BISOPROLOL [Concomitant]
     Indication: HYPERTENSION
     Route: 048
     Dates: start: 20080101

REACTIONS (1)
  - INTRAVENTRICULAR HAEMORRHAGE [None]
